FAERS Safety Report 19423025 (Version 1)
Quarter: 2021Q2

REPORT INFORMATION
  Report Type: Spontaneous
  Country: DE (occurrence: DE)
  Receive Date: 20210616
  Receipt Date: 20210616
  Transmission Date: 20210717
  Serious: Yes (Death)
  Sender: FDA-Public Use
  Company Number: DE-TEVA-2021-DE-1921280

PATIENT
  Age: 53 Year
  Sex: Male
  Weight: 92 kg

DRUGS (1)
  1. SILDENAFIL. [Suspect]
     Active Substance: SILDENAFIL
     Dosage: 50 MG
     Route: 048

REACTIONS (1)
  - Aortic dissection rupture [Fatal]

NARRATIVE: CASE EVENT DATE: 20210425
